FAERS Safety Report 5564810-X (Version None)
Quarter: 2007Q4

REPORT INFORMATION
  Report Type: 
  Country: None (occurrence: None)
  Receive Date: 20071214
  Receipt Date: 20071214
  Transmission Date: 20080405
  Serious: Yes (Life-Threatening)
  Sender: FDA-Public Use
  Company Number: None

PATIENT
  Sex: Female
  Weight: 77.1115 kg

DRUGS (1)
  1. PROVENTIL [Suspect]
     Dates: start: 20071213, end: 20071213

REACTIONS (2)
  - DEVICE FAILURE [None]
  - DRUG INEFFECTIVE [None]
